FAERS Safety Report 5564098-X (Version None)
Quarter: 2007Q4

REPORT INFORMATION
  Report Type: 
  Country: None (occurrence: None)
  Receive Date: 20071217
  Receipt Date: 20071207
  Transmission Date: 20080405
  Serious: Yes (Other)
  Sender: FDA-Public Use
  Company Number: US-RANBAXY-2007US-07661

PATIENT

DRUGS (2)
  1. ISOTRETINOIN [Suspect]
     Dosage: 40 MG, QD
     Dates: start: 20070424, end: 20070510
  2. AMNESTEEM [Concomitant]
     Dosage: 40 MG, QD
     Dates: start: 20070215, end: 20070316

REACTIONS (4)
  - ABORTION INDUCED [None]
  - DRUG EXPOSURE DURING PREGNANCY [None]
  - PREGNANCY [None]
  - TREATMENT NONCOMPLIANCE [None]
